FAERS Safety Report 9587356 (Version 2)
Quarter: 2013Q4

REPORT INFORMATION
  Report Type: Report from Study
  Country: CN (occurrence: CN)
  Receive Date: 20131003
  Receipt Date: 20131115
  Transmission Date: 20140711
  Serious: Yes (Hospitalization)
  Sender: FDA-Public Use
  Company Number: CN-UCBSA-099064

PATIENT
  Age: 55 Year
  Sex: Female
  Weight: 64 kg

DRUGS (6)
  1. ROTIGOTINE [Suspect]
     Indication: PARKINSON^S DISEASE
     Route: 062
     Dates: start: 20130717
  2. ROTIGOTINE [Suspect]
     Indication: PARKINSON^S DISEASE
     Route: 062
     Dates: start: 20130710, end: 20130717
  3. ROTIGOTINE [Suspect]
     Indication: PARKINSON^S DISEASE
     Route: 062
     Dates: start: 20130702, end: 20130710
  4. ROTIGOTINE [Suspect]
     Indication: PARKINSON^S DISEASE
     Route: 062
     Dates: start: 20130625, end: 20130702
  5. BETALOC [Concomitant]
     Indication: HYPERTENSION
     Route: 048
     Dates: start: 2003
  6. ENTACAPONE [Concomitant]
     Indication: PARKINSON^S DISEASE
     Route: 048
     Dates: start: 20130408

REACTIONS (3)
  - Myocardial bridging [Not Recovered/Not Resolved]
  - Gastric polyps [Recovered/Resolved]
  - Large intestine polyp [Recovered/Resolved]
